FAERS Safety Report 5928486-1 (Version None)
Quarter: 2008Q4

REPORT INFORMATION
  Report Type: 
  Country: None (occurrence: None)
  Receive Date: 20081020
  Receipt Date: 20081009
  Transmission Date: 20090506
  Serious: Yes (Disabling)
  Sender: FDA-Public Use
  Company Number: OSCN-NO-0810S-0550

PATIENT
  Age: 68 Year
  Sex: Female

DRUGS (13)
  1. OMNISCAN [Suspect]
     Indication: BLADDER CANCER
     Dosage: LESS THAN 10 ML., SINGLE DOSE, I.V.
     Route: 042
     Dates: start: 20021228, end: 20021228
  2. OMNISCAN [Suspect]
     Indication: RENAL CANCER STAGE I
     Dosage: LESS THAN 10 ML., SINGLE DOSE, I.V.
     Route: 042
     Dates: start: 20021228, end: 20021228
  3. OMNISCAN [Suspect]
     Indication: BLADDER CANCER
     Dosage: LESS THAN 10 ML., SINGLE DOSE, I.V.
     Route: 042
     Dates: start: 20060527, end: 20060527
  4. OMNISCAN [Suspect]
     Indication: RENAL CANCER STAGE I
     Dosage: LESS THAN 10 ML., SINGLE DOSE, I.V.
     Route: 042
     Dates: start: 20060527, end: 20060527
  5. EPOETIN ALFA (ESPO) [Concomitant]
  6. WARFARIN SODIUM [Concomitant]
  7. PLETAL [Concomitant]
  8. DIGOXIN [Concomitant]
  9. FERROUS CITRATE [Concomitant]
  10. EPOETIN BETA (EPOGIN) [Concomitant]
  11. DIOVANE (VALSARTAN) [Concomitant]
  12. PLETAL [Concomitant]
  13. NORVASC [Concomitant]

REACTIONS (5)
  - CONDITION AGGRAVATED [None]
  - HAEMODIALYSIS [None]
  - JOINT CONTRACTURE [None]
  - NEPHROGENIC SYSTEMIC FIBROSIS [None]
  - TALIPES [None]
